FAERS Safety Report 5326526-4 (Version None)
Quarter: 2007Q2

REPORT INFORMATION
  Report Type: 
  Country: None (occurrence: None)
  Receive Date: 20070516
  Receipt Date: 20070508
  Transmission Date: 20071010
  Serious: Yes (Death, Hospitalization)
  Sender: FDA-Public Use
  Company Number: US-ELI_LILLY_AND_COMPANY-US200705001196

PATIENT
  Age: 65 Year
  Sex: Male
  Weight: 73.922 kg

DRUGS (14)
  1. PEMETREXED [Suspect]
     Indication: SMALL CELL LUNG CANCER EXTENSIVE STAGE
     Dosage: 500 MG/M2, OTHER
     Route: 042
     Dates: start: 20070502, end: 20070502
  2. CARBOPLATIN [Suspect]
     Indication: SMALL CELL LUNG CANCER EXTENSIVE STAGE
     Dosage: 5 UNK, OTHER
     Route: 042
     Dates: start: 20070502, end: 20070502
  3. FOLIC ACID [Concomitant]
     Dosage: 1 MG, DAILY (1/D)
     Dates: start: 20070426, end: 20070501
  4. VITAMIN B-12 [Concomitant]
     Dosage: 1 MG, UNK
     Dates: start: 20070426, end: 20070426
  5. DEXAMETHASONE 0.5MG TAB [Concomitant]
     Dosage: 4 MG, OTHER
     Dates: start: 20070430, end: 20070501
  6. HYZAAR [Concomitant]
     Indication: HYPERTENSION
     Dosage: 25 UNK, DAILY (1/D)
  7. LOPID [Concomitant]
     Indication: HYPERTENSION
     Dosage: UNK, 2/D
  8. METOPROLOL SUCCINATE [Concomitant]
     Dosage: UNK, 2/D
  9. ATIVAN [Concomitant]
     Indication: SLEEP DISORDER
     Dosage: 1 MG, EACH EVENING
  10. INDOMETHACIN [Concomitant]
     Dosage: UNK, DAILY (1/D)
  11. TESTOSTERONE [Concomitant]
     Indication: HORMONE THERAPY
     Dosage: 0.5 ML, OTHER
  12. MULTI-VITAMIN [Concomitant]
     Indication: VITAMIN SUPPLEMENTATION
     Dosage: UNK, DAILY (1/D)
  13. ASCORBIC ACID [Concomitant]
     Indication: VITAMIN SUPPLEMENTATION
  14. FENTANYL [Concomitant]
     Indication: PAIN
     Dosage: UNK, AS NEEDED
     Route: 050

REACTIONS (2)
  - RENAL FAILURE [None]
  - TUMOUR LYSIS SYNDROME [None]
